FAERS Safety Report 7065738-9 (Version None)
Quarter: 2010Q4

REPORT INFORMATION
  Report Type: 
  Country: None (occurrence: None)
  Receive Date: 20101027
  Receipt Date: 20101015
  Transmission Date: 20110411
  Serious: Yes (Hospitalization)
  Sender: FDA-Public Use
  Company Number: PHHY2010JP69753

PATIENT
  Sex: Male

DRUGS (16)
  1. TASIGNA [Suspect]
     Indication: CHRONIC MYELOID LEUKAEMIA
     Dosage: 200 MG, UNK
     Route: 048
     Dates: start: 20090730, end: 20091112
  2. TASIGNA [Suspect]
     Dosage: UNK
     Route: 048
     Dates: start: 20091113, end: 20091210
  3. TASIGNA [Suspect]
     Dosage: UNK
     Route: 048
     Dates: start: 20091211, end: 20100107
  4. TASIGNA [Suspect]
     Dosage: UNK
     Route: 048
     Dates: start: 20100108, end: 20100101
  5. TASIGNA [Suspect]
     Dosage: 200 MG, UNK
     Route: 048
     Dates: start: 20101015
  6. PREDNISOLONE [Suspect]
     Dosage: 17 MG, UNK
     Route: 048
     Dates: start: 20090730
  7. PREDNISOLONE [Suspect]
     Dosage: 16 MG, UNK
     Route: 048
  8. PREDNISOLONE [Suspect]
     Dosage: 12 MG, UNK
     Route: 048
  9. PREDNISOLONE [Suspect]
     Dosage: 10 MG, UNK
     Route: 048
  10. PREDNISOLONE [Suspect]
     Dosage: 7 MG, UNK
     Route: 048
  11. PREDNISOLONE [Suspect]
     Dosage: 5 MG, UNK
     Route: 048
  12. PREDNISOLONE [Suspect]
     Dosage: 2.5 MG, UNK
     Route: 048
  13. PREDNISOLONE [Suspect]
     Dosage: 2 MG, UNK
     Route: 048
  14. PREDNISOLONE [Suspect]
     Dosage: 2.5 MG, UNK
     Route: 048
  15. PREDNISOLONE [Suspect]
     Dosage: 2 MG, UNK
     Route: 048
  16. PREDNISOLONE [Suspect]
     Dosage: 1 MG, UNK
     Route: 048

REACTIONS (2)
  - DUODENAL PERFORATION [None]
  - SURGERY [None]
